FAERS Safety Report 6923251-0 (Version None)
Quarter: 2010Q3

REPORT INFORMATION
  Report Type: 
  Country: None (occurrence: None)
  Receive Date: 20100813
  Receipt Date: 20100806
  Transmission Date: 20110219
  Serious: Yes (Hospitalization)
  Sender: FDA-Public Use
  Company Number: US-JNJFOC-20100802502

PATIENT
  Sex: Female

DRUGS (1)
  1. DURAGESIC-100 [Suspect]
     Indication: BACK PAIN
     Dosage: 25 UG/HR+50 UG/HR
     Route: 062

REACTIONS (1)
  - SPINAL DECOMPRESSION [None]
